FAERS Safety Report 5803534-8 (Version None)
Quarter: 2008Q3

REPORT INFORMATION
  Report Type: 
  Country: None (occurrence: None)
  Receive Date: 20080708
  Receipt Date: 20080627
  Transmission Date: 20090109
  Serious: Yes (Other)
  Sender: FDA-Public Use
  Company Number: DK-ASTRAZENECA-2008SE02601

PATIENT
  Age: 58 Year
  Sex: Female
  Weight: 86 kg

DRUGS (5)
  1. SELO-ZOK [Suspect]
     Indication: HYPERTENSION
     Route: 048
     Dates: end: 20080501
  2. SELO-ZOK [Suspect]
     Route: 048
     Dates: start: 20080501
  3. ATACAND [Concomitant]
  4. NOVORAPID [Concomitant]
     Indication: DIABETES MELLITUS
     Dates: start: 19611001
  5. LEVEMIR [Concomitant]
     Indication: DIABETES MELLITUS
     Dates: start: 19610101

REACTIONS (3)
  - DIARRHOEA [None]
  - HYPERGLYCAEMIA [None]
  - NAUSEA [None]
